FAERS Safety Report 23194409 (Version 3)
Quarter: 2024Q2

REPORT INFORMATION
  Report Type: Report from Study
  Country: US (occurrence: US)
  Receive Date: 20231117
  Receipt Date: 20240416
  Transmission Date: 20240716
  Serious: Yes (Other)
  Sender: FDA-Public Use
  Company Number: US-ABBVIE-5496000

PATIENT
  Sex: Female

DRUGS (3)
  1. RINVOQ [Suspect]
     Active Substance: UPADACITINIB
     Indication: Psoriatic arthropathy
     Dosage: FORM STRENGTH: 15 MG
     Route: 048
     Dates: start: 20230707, end: 20231106
  2. RINVOQ [Suspect]
     Active Substance: UPADACITINIB
     Indication: Psoriatic arthropathy
     Dosage: FORM STRENGTH: 15 MILLIGRAM
     Route: 048
     Dates: start: 2023
  3. RINVOQ [Suspect]
     Active Substance: UPADACITINIB
     Indication: Psoriatic arthropathy
     Route: 048

REACTIONS (14)
  - Exostosis [Unknown]
  - Blister [Unknown]
  - Upper respiratory tract infection [Recovered/Resolved]
  - Fall [Unknown]
  - Night sweats [Unknown]
  - Limb injury [Unknown]
  - Pain [Unknown]
  - Arthritis [Unknown]
  - Upper respiratory tract infection [Recovering/Resolving]
  - Hot flush [Unknown]
  - Nodule [Unknown]
  - Joint swelling [Unknown]
  - Rotator cuff syndrome [Unknown]
  - Arthralgia [Unknown]

NARRATIVE: CASE EVENT DATE: 20230101
